FAERS Safety Report 11140996 (Version 1)
Quarter: 2015Q2

REPORT INFORMATION
  Report Type: Spontaneous
  Country: ES (occurrence: ES)
  Receive Date: 20150527
  Receipt Date: 20150527
  Transmission Date: 20150821
  Serious: Yes (Hospitalization, Other)
  Sender: FDA-Public Use
  Company Number: ES-ASTRAZENECA-2015SE51298

PATIENT
  Age: 61 Year
  Sex: Male

DRUGS (18)
  1. VANCOMYCIN [Suspect]
     Active Substance: VANCOMYCIN
     Indication: ESCHERICHIA INFECTION
     Route: 065
     Dates: start: 2009
  2. COLISTIN [Suspect]
     Active Substance: COLISTIN
     Route: 065
  3. PIPERACILLIN/TAZOBACTAM [Suspect]
     Active Substance: PIPERACILLIN SODIUM\TAZOBACTAM SODIUM
     Route: 065
     Dates: start: 2009
  4. MEROPENEM. [Suspect]
     Active Substance: MEROPENEM
     Indication: CHOLANGITIS ACUTE
     Route: 042
     Dates: start: 2009
  5. AMIKACIN [Suspect]
     Active Substance: AMIKACIN
     Indication: ENTEROCOCCAL INFECTION
     Route: 065
     Dates: start: 2009
  6. AMIKACIN [Suspect]
     Active Substance: AMIKACIN
     Indication: ESCHERICHIA INFECTION
     Route: 065
     Dates: start: 2009
  7. DORIPENEM [Suspect]
     Active Substance: DORIPENEM
     Route: 065
     Dates: start: 2009
  8. METRONIDAZOLE. [Suspect]
     Active Substance: METRONIDAZOLE
     Route: 065
  9. FOSFOMYCIN [Suspect]
     Active Substance: FOSFOMYCIN
     Route: 065
     Dates: start: 2009
  10. AMIKACIN [Suspect]
     Active Substance: AMIKACIN
     Indication: CHOLANGITIS ACUTE
     Route: 065
     Dates: start: 2009
  11. MEROPENEM. [Suspect]
     Active Substance: MEROPENEM
     Indication: ESCHERICHIA INFECTION
     Route: 042
     Dates: start: 2009
  12. VANCOMYCIN [Suspect]
     Active Substance: VANCOMYCIN
     Indication: CHOLANGITIS ACUTE
     Route: 065
     Dates: start: 2009
  13. CEFTAZIDIME. [Suspect]
     Active Substance: CEFTAZIDIME
     Route: 065
     Dates: start: 2009
  14. TEICOPLANIN [Suspect]
     Active Substance: TEICOPLANIN
     Route: 065
     Dates: start: 2009
  15. MEROPENEM. [Suspect]
     Active Substance: MEROPENEM
     Indication: ENTEROCOCCAL INFECTION
     Route: 042
     Dates: start: 2009
  16. VANCOMYCIN [Suspect]
     Active Substance: VANCOMYCIN
     Indication: ENTEROCOCCAL INFECTION
     Route: 065
     Dates: start: 2009
  17. AMPICILLIN [Suspect]
     Active Substance: AMPICILLIN
     Route: 065
  18. FLUCONAZOLE. [Suspect]
     Active Substance: FLUCONAZOLE
     Indication: ANTIFUNGAL PROPHYLAXIS
     Route: 065

REACTIONS (4)
  - Liver abscess [Not Recovered/Not Resolved]
  - Pyrexia [Unknown]
  - Systemic candida [Recovered/Resolved]
  - Drug resistance [Unknown]
